FAERS Safety Report 7018038-7 (Version None)
Quarter: 2010Q3

REPORT INFORMATION
  Report Type: 
  Country: None (occurrence: None)
  Receive Date: 20100928
  Receipt Date: 20100920
  Transmission Date: 20110219
  Serious: Yes (Hospitalization)
  Sender: FDA-Public Use
  Company Number: FR-ASTRAZENECA-2010SE44313

PATIENT
  Age: 23169 Day
  Sex: Male

DRUGS (5)
  1. CRESTOR [Suspect]
     Indication: DYSLIPIDAEMIA
     Route: 048
     Dates: start: 20100710, end: 20100811
  2. CLOPIDOGREL [Suspect]
     Route: 048
     Dates: start: 20100724, end: 20100811
  3. CARDEGIC [Concomitant]
     Route: 048
     Dates: start: 20100710
  4. BISOPROLOL FUMARATE [Concomitant]
     Indication: HYPERTENSION
     Dates: start: 20100710
  5. VALSARTAN  AND HYDROCHLOROTHIAZIDE [Concomitant]
     Indication: HYPERTENSION
     Dosage: 160 12.5 MG DAILY
     Dates: start: 20020101

REACTIONS (2)
  - OEDEMA PERIPHERAL [None]
  - URTICARIA [None]
